FAERS Safety Report 9783736 (Version 1)
Quarter: 2013Q4

REPORT INFORMATION
  Report Type: Spontaneous
  Country: FR (occurrence: None)
  Receive Date: 20131223
  Receipt Date: 20131223
  Transmission Date: 20140711
  Serious: Yes (Life-Threatening)
  Sender: FDA-Public Use
  Company Number: 1946251

PATIENT
  Age: 55 Year
  Sex: Female

DRUGS (7)
  1. CARBOPLATIN [Suspect]
     Indication: THROAT CANCER
     Dosage: ONE ADMINISTRATON EVERY 7 DAYS DEPENDS ON PROTOCOL
     Route: 042
     Dates: start: 20120209, end: 20120209
  2. ERBITUX [Suspect]
     Indication: THROAT CANCER
     Dosage: ONE ADMINISTRATION (250 G/M^2) EVERY 7 DAYS DEPENDS ON PROTOCOL (1,1)
     Route: 042
     Dates: start: 20120216, end: 20120216
  3. DEXAMETHASONE PHOSPHATE [Suspect]
     Indication: THROAT CANCER
     Dosage: ONE ADMINISTRATION (20 MG) EVERY 7 DAYS DEPENDS ON PROTOCOL
     Route: 042
     Dates: start: 20120216, end: 20120216
  4. POLARAMINE [Suspect]
     Indication: PREMEDICATION
     Dosage: ONE ADMINISTRATION (5 MG) EVERY 7 DAYS DEPENDS ON PROTOCOL
     Route: 042
     Dates: start: 20120216, end: 20120216
  5. AZANTAC [Suspect]
     Indication: PREMEDICATION
     Dosage: ONE ADMINISTRATION (50 MG) EVERY 7 DAYS DEPENDS ON PROTOCOL
     Route: 042
     Dates: start: 20120216, end: 20120216
  6. ZOPHREN [Suspect]
     Indication: PRODUCT USED FOR UNKNOWN INDICATION
     Dosage: ONE ADMINISTRATION (8 MG) EVERY 7 DAYS DEPENDS ON PROTOCOL
     Route: 042
     Dates: start: 20120209, end: 20120209
  7. DOLIPRANE [Concomitant]

REACTIONS (3)
  - Melaena [None]
  - Anaemia [None]
  - Gastric ulcer haemorrhage [None]
